FAERS Safety Report 23014575 (Version 1)
Quarter: 2023Q4

REPORT INFORMATION
  Report Type: Report from Study
  Country: CA (occurrence: CA)
  Receive Date: 20231002
  Receipt Date: 20231002
  Transmission Date: 20240110
  Serious: Yes (Other)
  Sender: FDA-Public Use
  Company Number: CA-KOREA IPSEN Pharma-2021-14526

PATIENT
  Age: 60 Year
  Sex: Male

DRUGS (4)
  1. LANREOTIDE ACETATE [Suspect]
     Active Substance: LANREOTIDE ACETATE
     Indication: Gastroenteropancreatic neuroendocrine tumour disease
     Dosage: 120 MG
     Route: 058
     Dates: start: 20191127
  2. AFINITOR [Suspect]
     Active Substance: EVEROLIMUS
     Indication: Neuroendocrine tumour
     Dosage: 10 MG DAILY
     Dates: start: 20210601
  3. GABAPENTIN [Concomitant]
     Active Substance: GABAPENTIN
  4. FLUOXETINE [Concomitant]
     Active Substance: FLUOXETINE HYDROCHLORIDE

REACTIONS (18)
  - Type 2 diabetes mellitus [Unknown]
  - Metastases to bone [Not Recovered/Not Resolved]
  - Urinary retention [Not Recovered/Not Resolved]
  - Lethargy [Not Recovered/Not Resolved]
  - Eye swelling [Unknown]
  - Swelling face [Not Recovered/Not Resolved]
  - Blood pressure increased [Not Recovered/Not Resolved]
  - Body temperature increased [Not Recovered/Not Resolved]
  - Heart rate increased [Not Recovered/Not Resolved]
  - Fatigue [Not Recovered/Not Resolved]
  - Hypersomnia [Not Recovered/Not Resolved]
  - Vision blurred [Recovered/Resolved]
  - Paraesthesia [Unknown]
  - Dizziness [Not Recovered/Not Resolved]
  - Asthenia [Recovering/Resolving]
  - Blood sodium decreased [Unknown]
  - Dehydration [Unknown]
  - Dry mouth [Recovering/Resolving]

NARRATIVE: CASE EVENT DATE: 20210101
